FAERS Safety Report 7216401-2 (Version None)
Quarter: 2011Q1

REPORT INFORMATION
  Report Type: 
  Country: None (occurrence: None)
  Receive Date: 20110107
  Receipt Date: 20101224
  Transmission Date: 20110831
  Serious: Yes (Hospitalization, Other)
  Sender: FDA-Public Use
  Company Number: GB-ALLERGAN-1015567US

PATIENT
  Age: 13 Year
  Sex: Male

DRUGS (5)
  1. PRED FORTE [Suspect]
     Indication: PRODUCT USED FOR UNKNOWN INDICATION
     Dosage: FOUR TIMES DAILY FOR ONE WEEK, THEN THREE TIMES DAILY FOR A WEEK, THEN TWICE DAILY.
     Route: 047
  2. EQUASYM [Suspect]
     Indication: ATTENTION DEFICIT/HYPERACTIVITY DISORDER
  3. RISPERIDONE [Suspect]
     Indication: ATTENTION DEFICIT/HYPERACTIVITY DISORDER
     Dosage: 0.25 MG, BID
  4. EQUASYM [Suspect]
     Indication: AUTISM
     Dosage: 50 MG, QD
     Route: 048
     Dates: start: 20060901
  5. VEXOL [Suspect]
     Indication: PRODUCT USED FOR UNKNOWN INDICATION
     Dosage: THREE TIMES DAILY FOR TWO WEEKS, THEN TWICE A DAY
     Route: 047

REACTIONS (11)
  - EYE SWELLING [None]
  - PAPILLOEDEMA [None]
  - CONJUNCTIVAL HYPERAEMIA [None]
  - OPTIC DISC DISORDER [None]
  - VISUAL IMPAIRMENT [None]
  - OCULAR DISCOMFORT [None]
  - BENIGN INTRACRANIAL HYPERTENSION [None]
  - OCULAR HYPERAEMIA [None]
  - EYE PAIN [None]
  - EYELID OEDEMA [None]
  - OCULAR VASCULAR DISORDER [None]
